FAERS Safety Report 4280860-8 (Version None)
Quarter: 2004Q1

REPORT INFORMATION
  Report Type: 
  Country: None (occurrence: None)
  Receive Date: 20040127
  Receipt Date: 20040115
  Transmission Date: 20041129
  Serious: Yes (Hospitalization)
  Sender: FDA-Public Use
  Company Number: HQWYE383615JAN04

PATIENT
  Age: 84 Year
  Sex: Male

DRUGS (7)
  1. CORDARONE [Suspect]
     Dosage: 200 MG 5XPER 1 WK ORAL
     Route: 048
     Dates: start: 20020615, end: 20031204
  2. BECOTIDE (BECLOMETASONE DIPROPIONATE) [Concomitant]
  3. MOTILIUM [Concomitant]
  4. MEPROBAMATE [Concomitant]
  5. CASODEX [Concomitant]
  6. OMEPRAZOLE [Concomitant]
  7. MOOTROPYL (PIRACETAM) [Concomitant]

REACTIONS (5)
  - ATRIOVENTRICULAR BLOCK [None]
  - CARDIAC ARREST [None]
  - GENERAL PHYSICAL HEALTH DETERIORATION [None]
  - HYPERTHYROIDISM [None]
  - LUNG DISORDER [None]
